FAERS Safety Report 4359241-4 (Version None)
Quarter: 2004Q2

REPORT INFORMATION
  Report Type: 
  Country: None (occurrence: None)
  Receive Date: 20040512
  Receipt Date: 20040423
  Transmission Date: 20050107
  Serious: Yes (Other)
  Sender: FDA-Public Use
  Company Number: US_0404102541

PATIENT
  Sex: Female

DRUGS (3)
  1. GEMCITABINE HYDROCHLORIDE-IV (GEMCITABINE) [Suspect]
     Indication: BREAST CANCER
     Dosage: 1000 MG/M2 OTHER
     Route: 050
     Dates: start: 20020624, end: 20021025
  2. EPIRUBICIN [Suspect]
     Indication: BREAST CANCER
     Dosage: 90 MG/M2 OTHER
     Route: 050
     Dates: start: 20020624, end: 20021022
  3. PACLITAXEL [Suspect]
     Indication: BREAST CANCER
     Dosage: 175 MG/M2 OTHER
     Route: 050
     Dates: start: 20020624, end: 20021022

REACTIONS (3)
  - ACUTE LEUKAEMIA [None]
  - NEUTROPENIA [None]
  - THROMBOCYTOPENIA [None]
